FAERS Safety Report 21829540 (Version 3)
Quarter: 2023Q1

REPORT INFORMATION
  Report Type: Spontaneous
  Country: CN (occurrence: CN)
  Receive Date: 20230106
  Receipt Date: 20230125
  Transmission Date: 20230417
  Serious: Yes (Hospitalization, Other)
  Sender: FDA-Public Use
  Company Number: CN-Accord-294727

PATIENT
  Age: 5 Decade
  Sex: Female

DRUGS (6)
  1. MYCOPHENOLATE MOFETIL [Suspect]
     Active Substance: MYCOPHENOLATE MOFETIL
     Indication: Immunosuppression
     Dosage: 0.5 G Q12H
  2. ENTECAVIR [Suspect]
     Active Substance: ENTECAVIR
     Indication: Immunosuppressant drug therapy
  3. TACROLIMUS [Suspect]
     Active Substance: TACROLIMUS
     Indication: Immunosuppression
     Dosage: 2 MG Q12H
  4. SIROLIMUS [Suspect]
     Active Substance: SIROLIMUS
     Indication: Immunosuppression
     Dosage: 1.5 MG QD
  5. CYCLOSPORINE [Suspect]
     Active Substance: CYCLOSPORINE
     Indication: Immunosuppression
     Dosage: 75 MG Q12H
  6. LENVATINIB [Suspect]
     Active Substance: LENVATINIB
     Indication: Alpha 1 foetoprotein increased
     Dosage: 8 MG QD

REACTIONS (2)
  - Encephalitis autoimmune [Recovering/Resolving]
  - Cytopenia [Unknown]
